FAERS Safety Report 11345943 (Version 1)
Quarter: 2015Q3

REPORT INFORMATION
  Report Type: Spontaneous
  Country: US (occurrence: US)
  Receive Date: 20150803
  Receipt Date: 20150803
  Transmission Date: 20151125
  Serious: No
  Sender: FDA-Public Use
  Company Number: US-ELI_LILLY_AND_COMPANY-US200910003973

PATIENT

DRUGS (2)
  1. STRATTERA [Suspect]
     Active Substance: ATOMOXETINE HYDROCHLORIDE
     Dosage: UNK, EACH EVENING
  2. RITALIN [Concomitant]
     Active Substance: METHYLPHENIDATE HYDROCHLORIDE
     Dosage: UNK, EACH MORNING

REACTIONS (5)
  - Hypoglycaemia [Unknown]
  - Potentiating drug interaction [Unknown]
  - Middle insomnia [Recovering/Resolving]
  - Fatigue [Unknown]
  - Drug effect incomplete [Unknown]
